FAERS Safety Report 5815973-X (Version None)
Quarter: 2008Q3

REPORT INFORMATION
  Report Type: 
  Country: None (occurrence: None)
  Receive Date: 20080716
  Receipt Date: 20080716
  Transmission Date: 20090109
  Serious: No
  Sender: FDA-Public Use
  Company Number: None

PATIENT
  Sex: Male

DRUGS (1)
  1. ENBREL [Suspect]
     Dosage: 50 MG TWICE WEEKLY SQ
     Route: 058

REACTIONS (2)
  - MALAISE [None]
  - UNEVALUABLE EVENT [None]
